FAERS Safety Report 12278550 (Version 1)
Quarter: 2016Q2

REPORT INFORMATION
  Report Type: Spontaneous
  Country: US (occurrence: US)
  Receive Date: 20160418
  Receipt Date: 20160418
  Transmission Date: 20160815
  Serious: Yes (Other)
  Sender: FDA-Public Use
  Company Number: US-BAYER-2016-071570

PATIENT
  Age: 78 Year
  Sex: Female
  Weight: 70.3 kg

DRUGS (1)
  1. BAYER LOW DOSE [Suspect]
     Active Substance: ASPIRIN
     Dosage: 1 DF, QD
     Route: 048
     Dates: start: 201504

REACTIONS (2)
  - Product use issue [None]
  - Haematuria [None]

NARRATIVE: CASE EVENT DATE: 2015
